FAERS Safety Report 22803808 (Version 4)
Quarter: 2025Q3

REPORT INFORMATION
  Report Type: Spontaneous
  Country: CA (occurrence: CA)
  Receive Date: 20230809
  Receipt Date: 20250723
  Transmission Date: 20251021
  Serious: Yes (Death, Life-Threatening, Hospitalization, Disabling, Congenital Anomaly, Other)
  Sender: Haleon PLC
  Company Number: CA-002147023-NVSC2023CA052876

PATIENT
  Age: 44 Year
  Sex: Female
  Weight: 70 kg

DRUGS (280)
  1. VOLTAROL [Suspect]
     Active Substance: DICLOFENAC SODIUM
     Indication: Product used for unknown indication
     Route: 048
  2. VOLTAROL [Suspect]
     Active Substance: DICLOFENAC SODIUM
  3. VOLTAROL [Suspect]
     Active Substance: DICLOFENAC SODIUM
  4. ZOPICLONE [Concomitant]
     Active Substance: ZOPICLONE
     Indication: Product used for unknown indication
  5. ZOPICLONE [Concomitant]
     Active Substance: ZOPICLONE
  6. ZOPICLONE [Concomitant]
     Active Substance: ZOPICLONE
  7. PREVACID [Suspect]
     Active Substance: LANSOPRAZOLE
     Indication: Product used for unknown indication
     Route: 048
  8. PREVACID [Suspect]
     Active Substance: LANSOPRAZOLE
     Route: 048
  9. PREVACID [Suspect]
     Active Substance: LANSOPRAZOLE
     Route: 048
  10. VITAMIN C [Concomitant]
     Active Substance: ASCORBIC ACID
     Indication: Product used for unknown indication
  11. VITAMIN C [Concomitant]
     Active Substance: ASCORBIC ACID
  12. STELARA [Suspect]
     Active Substance: USTEKINUMAB
     Indication: Rheumatoid arthritis
  13. STELARA [Suspect]
     Active Substance: USTEKINUMAB
  14. CAFFEINE [Concomitant]
     Active Substance: CAFFEINE
     Indication: Product used for unknown indication
  15. CAFFEINE [Concomitant]
     Active Substance: CAFFEINE
  16. CAFFEINE [Concomitant]
     Active Substance: CAFFEINE
  17. CORTISONE ACETATE [Suspect]
     Active Substance: CORTISONE ACETATE
     Indication: Rheumatoid arthritis
  18. CORTISONE ACETATE [Suspect]
     Active Substance: CORTISONE ACETATE
  19. CORTISONE ACETATE [Suspect]
     Active Substance: CORTISONE ACETATE
  20. DICLOFENAC SODIUM [Suspect]
     Active Substance: DICLOFENAC SODIUM
     Indication: Product used for unknown indication
  21. DICLOFENAC SODIUM [Suspect]
     Active Substance: DICLOFENAC SODIUM
     Dosage: 50 MG, QD (Q24H), ROUTE : UNKNOWN
  22. DICLOFENAC SODIUM [Suspect]
     Active Substance: DICLOFENAC SODIUM
  23. RISEDRONATE SODIUM [Concomitant]
     Active Substance: RISEDRONATE SODIUM
     Indication: Product used for unknown indication
  24. RISEDRONATE SODIUM [Concomitant]
     Active Substance: RISEDRONATE SODIUM
  25. APREPITANT [Suspect]
     Active Substance: APREPITANT
     Indication: Product used for unknown indication
  26. APREPITANT [Suspect]
     Active Substance: APREPITANT
  27. APREPITANT [Suspect]
     Active Substance: APREPITANT
  28. APREPITANT [Suspect]
     Active Substance: APREPITANT
  29. SULFASALAZINE [Concomitant]
     Active Substance: SULFASALAZINE
     Indication: Product used for unknown indication
  30. SULFASALAZINE [Concomitant]
     Active Substance: SULFASALAZINE
  31. ACTEMRA [Suspect]
     Active Substance: TOCILIZUMAB
     Indication: Rheumatoid arthritis
     Dosage: 728 MG, WE DOSE FORM : SOLUTION FOR INFUSION, ROUTE :SUBCUTANEOUS
  32. ACTEMRA [Suspect]
     Active Substance: TOCILIZUMAB
     Dosage: 752.8 MG, WE DOSE FORM : SOLUTION FOR INFUSION, ROUTE :INTRAVENOUS
  33. ACTEMRA [Suspect]
     Active Substance: TOCILIZUMAB
  34. ACTEMRA [Suspect]
     Active Substance: TOCILIZUMAB
  35. ACTEMRA [Suspect]
     Active Substance: TOCILIZUMAB
     Dosage: 2912 MG, WE DOSE FORM : SOLUTION FOR INFUSION, ROUTE :INTRAVENOUS
  36. ACTEMRA [Suspect]
     Active Substance: TOCILIZUMAB
     Dosage: 728 MG, DOSE FORM : SOLUTION FOR INFUSION, ROUTE :INTRAVENOUS
  37. ACTEMRA [Suspect]
     Active Substance: TOCILIZUMAB
     Dosage: 752 MG, WE DOSE FORM : SOLUTION FOR INFUSION, ROUTE :INTRAVENOUS
  38. ACTEMRA [Suspect]
     Active Substance: TOCILIZUMAB
  39. ACTEMRA [Suspect]
     Active Substance: TOCILIZUMAB
  40. ACTEMRA [Suspect]
     Active Substance: TOCILIZUMAB
     Dosage: 2912 MG, QW, DOSE FORM : SOLUTION FOR INFUSION, ROUTE :INTRAVENOUS
  41. ACTEMRA [Suspect]
     Active Substance: TOCILIZUMAB
  42. ACTEMRA [Suspect]
     Active Substance: TOCILIZUMAB
  43. ACTEMRA [Suspect]
     Active Substance: TOCILIZUMAB
  44. ACTEMRA [Suspect]
     Active Substance: TOCILIZUMAB
  45. ACTEMRA [Suspect]
     Active Substance: TOCILIZUMAB
  46. ACTEMRA [Suspect]
     Active Substance: TOCILIZUMAB
  47. ACTEMRA [Suspect]
     Active Substance: TOCILIZUMAB
  48. ACTEMRA [Suspect]
     Active Substance: TOCILIZUMAB
  49. ACTEMRA [Suspect]
     Active Substance: TOCILIZUMAB
  50. ACTEMRA [Suspect]
     Active Substance: TOCILIZUMAB
  51. FLUMETHASONE [Suspect]
     Active Substance: FLUMETHASONE
     Indication: Product used for unknown indication
  52. TRAMADOL HYDROCHLORIDE [Suspect]
     Active Substance: TRAMADOL HYDROCHLORIDE
     Indication: Product used for unknown indication
  53. DIETARY SUPPLEMENT\HERBALS [Suspect]
     Active Substance: DIETARY SUPPLEMENT\HERBALS
     Indication: Product used for unknown indication
  54. CHLORAPREP [Suspect]
     Active Substance: CHLORHEXIDINE GLUCONATE\ISOPROPYL ALCOHOL
     Indication: Product used for unknown indication
  55. CHLORAPREP [Suspect]
     Active Substance: CHLORHEXIDINE GLUCONATE\ISOPROPYL ALCOHOL
  56. CHOLECALCIFEROL [Suspect]
     Active Substance: CHOLECALCIFEROL
     Indication: Product used for unknown indication
  57. CHOLECALCIFEROL [Suspect]
     Active Substance: CHOLECALCIFEROL
  58. PANTOPRAZOLE [Suspect]
     Active Substance: PANTOPRAZOLE
     Indication: Product used for unknown indication
  59. SALMON [Concomitant]
     Active Substance: SALMON, UNSPECIFIED
     Indication: Product used for unknown indication
  60. SALMON [Concomitant]
     Active Substance: SALMON, UNSPECIFIED
  61. PREDNISONE [Suspect]
     Active Substance: PREDNISONE
     Indication: Rheumatoid arthritis
     Route: 048
  62. PREDNISONE [Suspect]
     Active Substance: PREDNISONE
     Route: 048
  63. PREDNISONE [Suspect]
     Active Substance: PREDNISONE
     Dosage: 7.5 MG, QD (Q24H)
     Route: 048
  64. PREDNISONE [Suspect]
     Active Substance: PREDNISONE
  65. RITUXIMAB [Suspect]
     Active Substance: RITUXIMAB
     Indication: Rheumatoid arthritis
  66. RITUXIMAB [Suspect]
     Active Substance: RITUXIMAB
  67. RITUXIMAB [Suspect]
     Active Substance: RITUXIMAB
  68. RITUXIMAB [Suspect]
     Active Substance: RITUXIMAB
  69. RITUXIMAB [Suspect]
     Active Substance: RITUXIMAB
  70. RITUXIMAB [Suspect]
     Active Substance: RITUXIMAB
  71. RITUXIMAB [Suspect]
     Active Substance: RITUXIMAB
  72. RITUXIMAB [Suspect]
     Active Substance: RITUXIMAB
  73. RITUXIMAB [Suspect]
     Active Substance: RITUXIMAB
  74. ERELZI [Suspect]
     Active Substance: ETANERCEPT-SZZS
     Indication: Rheumatoid arthritis
     Dosage: 50 MG, WE DOSE FORM : UNKNOWN, ROUTE :SUBCUTANEOUS
  75. ERELZI [Suspect]
     Active Substance: ETANERCEPT-SZZS
     Dosage: 50 MG, QW, ROUTE :SUBCUTANEOUS
  76. REMICADE [Suspect]
     Active Substance: INFLIXIMAB
     Indication: Psoriatic arthropathy
  77. REMICADE [Suspect]
     Active Substance: INFLIXIMAB
     Indication: Rheumatoid arthritis
  78. REMICADE [Suspect]
     Active Substance: INFLIXIMAB
  79. REMICADE [Suspect]
     Active Substance: INFLIXIMAB
  80. REMICADE [Suspect]
     Active Substance: INFLIXIMAB
  81. REMICADE [Suspect]
     Active Substance: INFLIXIMAB
  82. DESOXIMETASONE [Suspect]
     Active Substance: DESOXIMETASONE
     Indication: Rheumatoid arthritis
  83. ACETAMINOPHEN AND CODEINE [Concomitant]
     Active Substance: ACETAMINOPHEN\CODEINE PHOSPHATE
     Indication: Product used for unknown indication
  84. ACETAMINOPHEN AND CODEINE [Concomitant]
     Active Substance: ACETAMINOPHEN\CODEINE PHOSPHATE
  85. ACETAMINOPHEN AND CODEINE [Concomitant]
     Active Substance: ACETAMINOPHEN\CODEINE PHOSPHATE
  86. ACETAMINOPHEN AND CODEINE [Concomitant]
     Active Substance: ACETAMINOPHEN\CODEINE PHOSPHATE
  87. DILTIAZEM [Suspect]
     Active Substance: DILTIAZEM
     Indication: Product used for unknown indication
  88. DILTIAZEM [Suspect]
     Active Substance: DILTIAZEM
  89. DILTIAZEM [Suspect]
     Active Substance: DILTIAZEM
  90. DILTIAZEM [Suspect]
     Active Substance: DILTIAZEM
  91. DILTIAZEM [Suspect]
     Active Substance: DILTIAZEM
  92. DILTIAZEM [Suspect]
     Active Substance: DILTIAZEM
  93. DILTIAZEM [Suspect]
     Active Substance: DILTIAZEM
  94. DILTIAZEM [Suspect]
     Active Substance: DILTIAZEM
     Dosage: 25 MG, Q12H
     Route: 048
  95. TYLENOL [Concomitant]
     Active Substance: ACETAMINOPHEN
     Indication: Product used for unknown indication
  96. TYLENOL [Concomitant]
     Active Substance: ACETAMINOPHEN
  97. DESOXIMETASONE [Suspect]
     Active Substance: DESOXIMETASONE
     Indication: Rheumatoid arthritis
  98. DESOXIMETASONE [Suspect]
     Active Substance: DESOXIMETASONE
  99. DESOXIMETASONE [Suspect]
     Active Substance: DESOXIMETASONE
  100. DESOXIMETASONE [Suspect]
     Active Substance: DESOXIMETASONE
  101. DESOXIMETASONE [Suspect]
     Active Substance: DESOXIMETASONE
     Dosage: 25 MG, WE
     Route: 048
  102. DESOXIMETASONE [Suspect]
     Active Substance: DESOXIMETASONE
  103. DESOXIMETASONE [Suspect]
     Active Substance: DESOXIMETASONE
  104. DESOXIMETASONE [Suspect]
     Active Substance: DESOXIMETASONE
  105. DESOXIMETASONE [Suspect]
     Active Substance: DESOXIMETASONE
  106. DESOXIMETASONE [Suspect]
     Active Substance: DESOXIMETASONE
  107. DESOXIMETASONE [Suspect]
     Active Substance: DESOXIMETASONE
  108. DESOXIMETASONE [Suspect]
     Active Substance: DESOXIMETASONE
     Dosage: 25 MG, ROUTE : CUTANEOUS
  109. DESOXIMETASONE [Suspect]
     Active Substance: DESOXIMETASONE
     Route: 048
  110. DESOXIMETASONE [Suspect]
     Active Substance: DESOXIMETASONE
  111. DESOXIMETASONE [Suspect]
     Active Substance: DESOXIMETASONE
  112. TOCILIZUMAB [Suspect]
     Active Substance: TOCILIZUMAB
     Indication: Rheumatoid arthritis
  113. TOCILIZUMAB [Suspect]
     Active Substance: TOCILIZUMAB
  114. LANSOPRAZOLE [Concomitant]
     Active Substance: LANSOPRAZOLE
     Indication: Product used for unknown indication
  115. ENBREL [Suspect]
     Active Substance: ETANERCEPT
     Indication: Psoriatic arthropathy
  116. ENBREL [Suspect]
     Active Substance: ETANERCEPT
     Indication: Rheumatoid arthritis
     Dosage: 20 MG, WE,DOSE FORM; UNKNOWN, ROUTE : SUBCUTANEOUS
  117. ENBREL [Suspect]
     Active Substance: ETANERCEPT
     Indication: Psoriasis
     Dosage: 50 MG, DOSE FORM; UNKNOWN, ROUTE : SUBCUTANEOUS
  118. ENBREL [Suspect]
     Active Substance: ETANERCEPT
  119. ENBREL [Suspect]
     Active Substance: ETANERCEPT
  120. ENBREL [Suspect]
     Active Substance: ETANERCEPT
  121. ENBREL [Suspect]
     Active Substance: ETANERCEPT
     Dosage: 25 MG, QD
     Route: 050
  122. ENBREL [Suspect]
     Active Substance: ETANERCEPT
  123. ENBREL [Suspect]
     Active Substance: ETANERCEPT
  124. ENBREL [Suspect]
     Active Substance: ETANERCEPT
     Dosage: 50 MG, QW, ROUTE : SUBCUTANEOUS
  125. ENBREL [Suspect]
     Active Substance: ETANERCEPT
  126. ENBREL [Suspect]
     Active Substance: ETANERCEPT
     Dosage: 50 MG, ROUTE : SUBCUTANEOUS
  127. ENBREL [Suspect]
     Active Substance: ETANERCEPT
     Dosage: 1 DOSAGE FORM, QW, ROUTE : SUBCUTANEOUS
  128. ENBREL [Suspect]
     Active Substance: ETANERCEPT
     Dosage: 25 MG, QD, ROUTE :UNKNOWN
  129. ENBREL [Suspect]
     Active Substance: ETANERCEPT
     Dosage: 50 MG, QW,ROUTE : SUBCUTANEOUS
  130. ENBREL [Suspect]
     Active Substance: ETANERCEPT
  131. DOXYCYCLINE HYCLATE [Suspect]
     Active Substance: DOXYCYCLINE HYCLATE
     Indication: Product used for unknown indication
  132. DOXYCYCLINE HYCLATE [Suspect]
     Active Substance: DOXYCYCLINE HYCLATE
  133. DOXYCYCLINE HYCLATE [Suspect]
     Active Substance: DOXYCYCLINE HYCLATE
  134. DOXYCYCLINE HYCLATE [Suspect]
     Active Substance: DOXYCYCLINE HYCLATE
  135. CELEBREX [Suspect]
     Active Substance: CELECOXIB
     Indication: Arthritis
     Dosage: 1 DF, QD (Q24H), ROUTE : UNKNOWN
  136. CELEBREX [Suspect]
     Active Substance: CELECOXIB
  137. CELEBREX [Suspect]
     Active Substance: CELECOXIB
  138. CELEBREX [Suspect]
     Active Substance: CELECOXIB
     Dosage: 2 DF, QD 1 EVERY 1 DAYS
     Route: 050
  139. CHLORHEXIDINE [Suspect]
     Active Substance: CHLORHEXIDINE
     Indication: Product used for unknown indication
  140. CHLORHEXIDINE [Suspect]
     Active Substance: CHLORHEXIDINE
  141. CHLORHEXIDINE [Suspect]
     Active Substance: CHLORHEXIDINE
     Route: 048
  142. CHLORHEXIDINE [Suspect]
     Active Substance: CHLORHEXIDINE
  143. ALENDRONATE SODIUM [Suspect]
     Active Substance: ALENDRONATE SODIUM
     Indication: Rheumatoid arthritis
  144. ALENDRONATE SODIUM [Suspect]
     Active Substance: ALENDRONATE SODIUM
     Route: 048
  145. ALENDRONATE SODIUM [Suspect]
     Active Substance: ALENDRONATE SODIUM
  146. ALENDRONATE SODIUM [Suspect]
     Active Substance: ALENDRONATE SODIUM
     Route: 048
  147. ATIVAN [Concomitant]
     Active Substance: LORAZEPAM
     Indication: Anxiety
  148. CETIRIZINE HYDROCHLORIDE [Suspect]
     Active Substance: CETIRIZINE HYDROCHLORIDE
     Indication: Rheumatoid arthritis
  149. CETIRIZINE HYDROCHLORIDE [Suspect]
     Active Substance: CETIRIZINE HYDROCHLORIDE
  150. ADALIMUMAB [Suspect]
     Active Substance: ADALIMUMAB
     Indication: Rheumatoid arthritis
  151. ADALIMUMAB [Suspect]
     Active Substance: ADALIMUMAB
  152. ZESTRIL [Concomitant]
     Active Substance: LISINOPRIL
     Indication: Product used for unknown indication
  153. ZESTRIL [Concomitant]
     Active Substance: LISINOPRIL
  154. ZESTRIL [Concomitant]
     Active Substance: LISINOPRIL
  155. METHOTREXATE [Suspect]
     Active Substance: METHOTREXATE
     Indication: Rheumatoid arthritis
     Dosage: 25 MG, QD (Q24H), DOSE FORM : UNKNOWN
     Route: 048
  156. METHOTREXATE [Suspect]
     Active Substance: METHOTREXATE
     Indication: Psoriatic arthropathy
     Dosage: 20 MG, QD (Q24H), DOSE FORM : UNKNOWN, ROUTE : INTRAVENOUS
  157. METHOTREXATE [Suspect]
     Active Substance: METHOTREXATE
     Dosage: 1 DOSAGE FORM, QD
     Route: 048
  158. METHOTREXATE [Suspect]
     Active Substance: METHOTREXATE
  159. METHOTREXATE [Suspect]
     Active Substance: METHOTREXATE
     Route: 048
  160. METHOTREXATE [Suspect]
     Active Substance: METHOTREXATE
     Route: 048
  161. METHOTREXATE [Suspect]
     Active Substance: METHOTREXATE
     Route: 048
  162. METHOTREXATE [Suspect]
     Active Substance: METHOTREXATE
     Route: 048
  163. METHOTREXATE [Suspect]
     Active Substance: METHOTREXATE
  164. METHOTREXATE [Suspect]
     Active Substance: METHOTREXATE
     Dosage: ;15 MG, QD ROUTE: UNKNOWN
  165. METHOTREXATE [Suspect]
     Active Substance: METHOTREXATE
  166. METHOTREXATE [Suspect]
     Active Substance: METHOTREXATE
     Dosage: 20 MG, QD ROUTE: UNKNOWN
  167. METHOTREXATE [Suspect]
     Active Substance: METHOTREXATE
  168. METHOTREXATE [Suspect]
     Active Substance: METHOTREXATE
     Dosage: 25 MG, Q24H
     Route: 048
  169. METHOTREXATE [Suspect]
     Active Substance: METHOTREXATE
     Dosage: 25 MG, QW, ROUTE : SUBCUTANEOUS
  170. METHOTREXATE [Suspect]
     Active Substance: METHOTREXATE
  171. METHOTREXATE [Suspect]
     Active Substance: METHOTREXATE
     Route: 048
  172. METHOTREXATE [Suspect]
     Active Substance: METHOTREXATE
     Dosage: 20 MG, QW, ROUTE : UNKNOWN
  173. METHOTREXATE [Suspect]
     Active Substance: METHOTREXATE
     Route: 048
  174. METHOTREXATE [Suspect]
     Active Substance: METHOTREXATE
     Dosage: 25 MG, QW, ROUTE : INTRAARTERIAL
  175. METHOTREXATE [Suspect]
     Active Substance: METHOTREXATE
     Route: 048
  176. METHOTREXATE [Suspect]
     Active Substance: METHOTREXATE
  177. METHOTREXATE [Suspect]
     Active Substance: METHOTREXATE
  178. METHOTREXATE [Suspect]
     Active Substance: METHOTREXATE
     Dosage: 20 MG, QD, ROUTE : SUBCUTANEOUS
  179. METHOTREXATE [Suspect]
     Active Substance: METHOTREXATE
  180. METHOTREXATE [Suspect]
     Active Substance: METHOTREXATE
     Route: 048
  181. METHOTREXATE [Suspect]
     Active Substance: METHOTREXATE
  182. METHOTREXATE [Suspect]
     Active Substance: METHOTREXATE
     Dosage: 20 MG, Q24H
     Route: 048
  183. METHOTREXATE [Suspect]
     Active Substance: METHOTREXATE
     Dosage: 1 DOSAGE FORM, QD
     Route: 048
  184. METHOTREXATE [Suspect]
     Active Substance: METHOTREXATE
  185. METHOTREXATE [Suspect]
     Active Substance: METHOTREXATE
  186. METHOTREXATE [Suspect]
     Active Substance: METHOTREXATE
     Dosage: 15 MG, QW
     Route: 048
  187. METHOTREXATE [Suspect]
     Active Substance: METHOTREXATE
  188. METHOTREXATE [Suspect]
     Active Substance: METHOTREXATE
     Dosage: 20 MG, QW
     Route: 048
  189. METHOTREXATE [Suspect]
     Active Substance: METHOTREXATE
     Dosage: 25 MG, Q24H, ROUTE : SUBCUTANEOUS
  190. ACETAMINOPHEN [Suspect]
     Active Substance: ACETAMINOPHEN
     Indication: Rheumatoid arthritis
  191. ACETAMINOPHEN [Suspect]
     Active Substance: ACETAMINOPHEN
  192. ACETAMINOPHEN [Suspect]
     Active Substance: ACETAMINOPHEN
  193. ACETAMINOPHEN [Suspect]
     Active Substance: ACETAMINOPHEN
  194. INFLIXIMAB [Suspect]
     Active Substance: INFLIXIMAB
     Indication: Rheumatoid arthritis
  195. INFLIXIMAB [Suspect]
     Active Substance: INFLIXIMAB
  196. INFLIXIMAB [Suspect]
     Active Substance: INFLIXIMAB
  197. INFLIXIMAB [Suspect]
     Active Substance: INFLIXIMAB
  198. INFLIXIMAB [Suspect]
     Active Substance: INFLIXIMAB
  199. INFLIXIMAB [Suspect]
     Active Substance: INFLIXIMAB
  200. INFLIXIMAB [Suspect]
     Active Substance: INFLIXIMAB
  201. LYRICA [Suspect]
     Active Substance: PREGABALIN
     Indication: Product used for unknown indication
  202. CORTISONE [Suspect]
     Active Substance: CORTISONE
     Indication: Rheumatoid arthritis
  203. CORTISONE [Suspect]
     Active Substance: CORTISONE
  204. CIMZIA [Suspect]
     Active Substance: CERTOLIZUMAB PEGOL
     Indication: Rheumatoid arthritis
     Dosage: 400 MG, QMO, DOSE FORM :SOLUTION FOR INJECTION, ROUTE :SUBCUTANEOUS USE
  205. CIMZIA [Suspect]
     Active Substance: CERTOLIZUMAB PEGOL
     Indication: Psoriatic arthropathy
  206. CIMZIA [Suspect]
     Active Substance: CERTOLIZUMAB PEGOL
     Indication: Psoriasis
  207. CIMZIA [Suspect]
     Active Substance: CERTOLIZUMAB PEGOL
  208. CIMZIA [Suspect]
     Active Substance: CERTOLIZUMAB PEGOL
  209. CIMZIA [Suspect]
     Active Substance: CERTOLIZUMAB PEGOL
  210. ARAVA [Suspect]
     Active Substance: LEFLUNOMIDE
     Indication: Rheumatoid arthritis
  211. ARAVA [Suspect]
     Active Substance: LEFLUNOMIDE
     Route: 048
  212. ARAVA [Suspect]
     Active Substance: LEFLUNOMIDE
     Dosage: 2000 MG, QD (Q24H),ROUTE : UNKNOWN
  213. ARAVA [Suspect]
     Active Substance: LEFLUNOMIDE
     Dosage: 20 MG, QD (Q24H)
     Route: 048
  214. ARAVA [Suspect]
     Active Substance: LEFLUNOMIDE
     Route: 048
  215. ARAVA [Suspect]
     Active Substance: LEFLUNOMIDE
  216. ARAVA [Suspect]
     Active Substance: LEFLUNOMIDE
  217. ARAVA [Suspect]
     Active Substance: LEFLUNOMIDE
     Route: 048
  218. MELOXICAM [Concomitant]
     Active Substance: MELOXICAM
     Indication: Product used for unknown indication
  219. MELOXICAM [Concomitant]
     Active Substance: MELOXICAM
  220. MELOXICAM [Concomitant]
     Active Substance: MELOXICAM
  221. MORPHINE [Concomitant]
     Active Substance: MORPHINE
     Indication: Product used for unknown indication
  222. MORPHINE [Concomitant]
     Active Substance: MORPHINE
  223. MORPHINE [Concomitant]
     Active Substance: MORPHINE
  224. PREDNISOLONE [Concomitant]
     Active Substance: PREDNISOLONE
     Indication: Product used for unknown indication
  225. TRAMADOL [Suspect]
     Active Substance: TRAMADOL
     Indication: Product used for unknown indication
  226. SIMPONI [Suspect]
     Active Substance: GOLIMUMAB
     Indication: Rheumatoid arthritis
  227. SULFAMETHOXAZOLE [Suspect]
     Active Substance: SULFAMETHOXAZOLE
     Indication: Product used for unknown indication
  228. ALBUTEROL [Concomitant]
     Active Substance: ALBUTEROL
     Indication: Product used for unknown indication
  229. ALBUTEROL [Concomitant]
     Active Substance: ALBUTEROL
  230. PREDNISONE [Suspect]
     Active Substance: PREDNISONE
     Indication: Rheumatoid arthritis
     Route: 048
  231. SULFASALAZINE [Suspect]
     Active Substance: SULFASALAZINE
     Indication: Rheumatoid arthritis
     Dosage: 2 G, BID
     Route: 048
  232. SULFASALAZINE [Suspect]
     Active Substance: SULFASALAZINE
     Indication: Product used for unknown indication
     Dosage: 2000 MG, Q24H
     Route: 048
  233. SULFASALAZINE [Suspect]
     Active Substance: SULFASALAZINE
     Dosage: 500 MG, BID
     Route: 048
  234. SULFASALAZINE [Suspect]
     Active Substance: SULFASALAZINE
     Route: 048
  235. SULFASALAZINE [Suspect]
     Active Substance: SULFASALAZINE
     Dosage: 2 DOSAGE FORM, BID
     Route: 048
  236. SULFASALAZINE [Suspect]
     Active Substance: SULFASALAZINE
     Dosage: 1500 MG, BID, ROUTE : UNKNOWN
  237. SULFASALAZINE [Suspect]
     Active Substance: SULFASALAZINE
     Route: 048
  238. SULFASALAZINE [Suspect]
     Active Substance: SULFASALAZINE
     Dosage: 1 DOSAGE FORM, BID,ROUTE : UNKNOWN
  239. SULFASALAZINE [Suspect]
     Active Substance: SULFASALAZINE
     Dosage: 1 G, QD,ROUTE : UNKNOWN
  240. SULFASALAZINE [Suspect]
     Active Substance: SULFASALAZINE
     Route: 048
  241. SULFASALAZINE [Suspect]
     Active Substance: SULFASALAZINE
     Dosage: 300 MG, QD ROUTE : UNKNOWN
  242. SULFASALAZINE [Suspect]
     Active Substance: SULFASALAZINE
  243. SULFASALAZINE [Suspect]
     Active Substance: SULFASALAZINE
  244. SULFASALAZINE [Suspect]
     Active Substance: SULFASALAZINE
     Route: 048
  245. SULFASALAZINE [Suspect]
     Active Substance: SULFASALAZINE
  246. SULFASALAZINE [Suspect]
     Active Substance: SULFASALAZINE
     Dosage: 1500 MG, BID ROUTE : UNKNOWN
  247. SULFASALAZINE [Suspect]
     Active Substance: SULFASALAZINE
     Dosage: 300 MG, QD ROUTE : UNKNOWN
  248. SULFASALAZINE [Suspect]
     Active Substance: SULFASALAZINE
     Dosage: 1 G, BID ROUTE : SUBCUTANEOUS
  249. SULFASALAZINE [Suspect]
     Active Substance: SULFASALAZINE
     Dosage: 1 DOSAGE FORM, Q12H
     Route: 048
  250. SULFASALAZINE [Suspect]
     Active Substance: SULFASALAZINE
     Dosage: 1 DOSAGE FORM, BID
     Route: 048
  251. SULFASALAZINE [Suspect]
     Active Substance: SULFASALAZINE
     Dosage: 1 G, BID, ROUTE : SUBCUTANEOUS
  252. SULFASALAZINE [Suspect]
     Active Substance: SULFASALAZINE
     Dosage: 2 G, QD
     Route: 048
  253. SULFASALAZINE [Suspect]
     Active Substance: SULFASALAZINE
  254. SULFASALAZINE [Suspect]
     Active Substance: SULFASALAZINE
     Dosage: 1000 MG, Q12H
     Route: 048
  255. SULFASALAZINE [Suspect]
     Active Substance: SULFASALAZINE
     Dosage: 1000 MG, BID
     Route: 048
  256. SULFASALAZINE [Suspect]
     Active Substance: SULFASALAZINE
     Dosage: 500 MG, Q12H
     Route: 048
  257. SULFASALAZINE [Suspect]
     Active Substance: SULFASALAZINE
     Dosage: 1 G, BID
     Route: 048
  258. SULFASALAZINE [Suspect]
     Active Substance: SULFASALAZINE
     Dosage: 1 G, Q12H
     Route: 048
  259. SULFASALAZINE [Suspect]
     Active Substance: SULFASALAZINE
     Dosage: 2 G, QD
     Route: 048
  260. SULFASALAZINE [Suspect]
     Active Substance: SULFASALAZINE
     Dosage: 1 G, QD ROUTE : SUBCUTANEOUS
  261. SULFASALAZINE [Suspect]
     Active Substance: SULFASALAZINE
     Route: 048
  262. SULFASALAZINE [Suspect]
     Active Substance: SULFASALAZINE
     Dosage: 3400 MG, QW ROUTE : UNKNOWN
  263. SULFASALAZINE [Suspect]
     Active Substance: SULFASALAZINE
     Route: 048
  264. SULFASALAZINE [Suspect]
     Active Substance: SULFASALAZINE
     Dosage: 1000 MG, BID
     Route: 048
  265. SULFASALAZINE [Suspect]
     Active Substance: SULFASALAZINE
  266. TRIAMCINOLONE ACETONIDE [Suspect]
     Active Substance: TRIAMCINOLONE ACETONIDE
     Indication: Rheumatoid arthritis
  267. XELJANZ [Suspect]
     Active Substance: TOFACITINIB CITRATE
     Indication: Rheumatoid arthritis
     Dosage: 10 MG, Q24H, ROUTE : UNKNOWN
  268. XELJANZ [Suspect]
     Active Substance: TOFACITINIB CITRATE
     Route: 048
  269. XELJANZ [Suspect]
     Active Substance: TOFACITINIB CITRATE
     Dosage: 4 MG, BID ROUTE : UNKNOWN
  270. XELJANZ [Suspect]
     Active Substance: TOFACITINIB CITRATE
     Dosage: 5 MG, QD ROUTE : UNKNOWN
  271. XELJANZ [Suspect]
     Active Substance: TOFACITINIB CITRATE
     Dosage: 5 MG, BID ROUTE : UNKNOWN
  272. XELJANZ [Suspect]
     Active Substance: TOFACITINIB CITRATE
     Dosage: 5 MG, QD ROUTE : UNKNOWN
  273. XELJANZ [Suspect]
     Active Substance: TOFACITINIB CITRATE
  274. XELJANZ [Suspect]
     Active Substance: TOFACITINIB CITRATE
  275. XELJANZ [Suspect]
     Active Substance: TOFACITINIB CITRATE
     Dosage: 4 MG, BID ROUTE : UNKNOWN
  276. XELJANZ [Suspect]
     Active Substance: TOFACITINIB CITRATE
     Dosage: 5 MG, BID ROUTE : UNKNOWN
  277. XELJANZ [Suspect]
     Active Substance: TOFACITINIB CITRATE
     Dosage: 5 MG, QD
     Route: 048
  278. XELJANZ [Suspect]
     Active Substance: TOFACITINIB CITRATE
  279. XELJANZ [Suspect]
     Active Substance: TOFACITINIB CITRATE
     Dosage: 5 MG, BID
     Route: 048
  280. TRIAMCINOLONE ACETONIDE\ZINC OXIDE [Suspect]
     Active Substance: TRIAMCINOLONE ACETONIDE\ZINC OXIDE
     Indication: Rheumatoid arthritis

REACTIONS (110)
  - Systemic lupus erythematosus [Fatal]
  - Autoimmune disorder [Fatal]
  - Deep vein thrombosis postoperative [Fatal]
  - Pain in extremity [Fatal]
  - Urticaria [Fatal]
  - Depression [Fatal]
  - Infusion related reaction [Fatal]
  - Weight decreased [Fatal]
  - Swollen joint count [Fatal]
  - Rheumatoid factor positive [Fatal]
  - Gait inability [Fatal]
  - Anxiety [Fatal]
  - Thrombocytopenia [Fatal]
  - Abdominal pain upper [Fatal]
  - Drug intolerance [Fatal]
  - Blister [Fatal]
  - Weight fluctuation [Fatal]
  - Wound [Fatal]
  - Hypertension [Fatal]
  - Osteoporosis [Fatal]
  - General physical health deterioration [Fatal]
  - Injury [Fatal]
  - Road traffic accident [Fatal]
  - Wheezing [Fatal]
  - Off label use [Fatal]
  - Dyspepsia [Fatal]
  - Underdose [Fatal]
  - Maternal exposure during pregnancy [Fatal]
  - Bursitis [Fatal]
  - Insomnia [Fatal]
  - Hypoaesthesia [Fatal]
  - Live birth [Fatal]
  - Nausea [Fatal]
  - Tachycardia [Fatal]
  - Alopecia [Fatal]
  - Porphyria acute [Fatal]
  - Sciatica [Fatal]
  - Exostosis [Fatal]
  - Chest pain [Fatal]
  - Folliculitis [Fatal]
  - Oedema peripheral [Fatal]
  - Ear infection [Fatal]
  - Vomiting [Fatal]
  - Oedema [Fatal]
  - Sleep disorder [Fatal]
  - Lower limb fracture [Fatal]
  - Anti-cyclic citrullinated peptide antibody [Fatal]
  - Rheumatoid arthritis [Fatal]
  - Seronegative arthritis [Fatal]
  - Therapeutic product effect incomplete [Fatal]
  - Laboratory test abnormal [Fatal]
  - Helicobacter infection [Fatal]
  - Prescribed overdose [Fatal]
  - Breast cancer stage III [Fatal]
  - Hypercholesterolaemia [Fatal]
  - Impaired healing [Fatal]
  - Crohn^s disease [Fatal]
  - Rectal haemorrhage [Fatal]
  - Nasopharyngitis [Fatal]
  - Hepatic enzyme increased [Fatal]
  - Pruritus [Fatal]
  - Bronchitis [Fatal]
  - Irritable bowel syndrome [Fatal]
  - Mobility decreased [Fatal]
  - Dizziness [Fatal]
  - Joint range of motion decreased [Fatal]
  - Adjustment disorder with depressed mood [Fatal]
  - Psoriatic arthropathy [Fatal]
  - Pericarditis [Fatal]
  - Pemphigus [Fatal]
  - Asthma [Fatal]
  - Pneumonia [Fatal]
  - Confusional state [Fatal]
  - Weight increased [Fatal]
  - Rash [Fatal]
  - Visual impairment [Fatal]
  - Fibromyalgia [Fatal]
  - Headache [Fatal]
  - Synovitis [Fatal]
  - Intentional product use issue [Fatal]
  - Prescribed underdose [Fatal]
  - Stomatitis [Fatal]
  - Duodenal ulcer perforation [Fatal]
  - Sinusitis [Fatal]
  - Pulmonary fibrosis [Fatal]
  - Psoriasis [Fatal]
  - Memory impairment [Fatal]
  - Pancreatitis [Fatal]
  - Bone erosion [Fatal]
  - Peripheral venous disease [Fatal]
  - Type 2 diabetes mellitus [Fatal]
  - Drug-induced liver injury [Fatal]
  - Drug hypersensitivity [Fatal]
  - Muscle injury [Fatal]
  - C-reactive protein abnormal [Fatal]
  - Therapeutic product effect decreased [Fatal]
  - Swollen joint count increased [Fatal]
  - Laryngitis [Fatal]
  - Exposure during pregnancy [Fatal]
  - Pyrexia [Fatal]
  - Pregnancy [Fatal]
  - Drug ineffective [Fatal]
  - Spondylitis [Fatal]
  - Swelling [Fatal]
  - Diarrhoea [Fatal]
  - Hand deformity [Fatal]
  - Incorrect route of product administration [Fatal]
  - Product use in unapproved indication [Fatal]
  - Contraindicated product administered [Fatal]
  - Wheezing [Fatal]
